FAERS Safety Report 9636245 (Version 2)
Quarter: 2013Q4

REPORT INFORMATION
  Report Type: Spontaneous
  Country: US (occurrence: US)
  Receive Date: 20131021
  Receipt Date: 20131021
  Transmission Date: 20140711
  Serious: Yes (Hospitalization)
  Sender: FDA-Public Use
  Company Number: US-FRI-1000023128

PATIENT
  Sex: Female

DRUGS (4)
  1. ARMOUR THYROID [Suspect]
     Indication: HYPOTHYROIDISM
     Dosage: 60 MG
     Route: 048
  2. NORVASC [Concomitant]
     Indication: HYPERTENSION
  3. PLAVIX [Concomitant]
     Indication: TRANSIENT ISCHAEMIC ATTACK
  4. BABY ASPIRIN [Concomitant]
     Dosage: 81 MG

REACTIONS (5)
  - Cerebrovascular accident [Recovered/Resolved]
  - Drug ineffective [Not Recovered/Not Resolved]
  - Somnolence [Not Recovered/Not Resolved]
  - Asthenia [Not Recovered/Not Resolved]
  - Feeling abnormal [Not Recovered/Not Resolved]
